FAERS Safety Report 5570065-2 (Version None)
Quarter: 2007Q4

REPORT INFORMATION
  Report Type: 
  Country: None (occurrence: None)
  Receive Date: 20071218
  Receipt Date: 20071204
  Transmission Date: 20080405
  Serious: Yes (Other)
  Sender: FDA-Public Use
  Company Number: 2007S1000300

PATIENT

DRUGS (1)
  1. ACITRETIN [Suspect]
     Dosage: VAG
     Route: 067

REACTIONS (3)
  - ANODONTIA [None]
  - PREGNANCY OF PARTNER [None]
  - TRANSMISSION OF DRUG VIA SEMEN [None]
